FAERS Safety Report 8420974-1 (Version None)
Quarter: 2012Q2

REPORT INFORMATION
  Report Type: 
  Country: None (occurrence: None)
  Receive Date: 20120608
  Receipt Date: 20120530
  Transmission Date: 20120825
  Serious: Yes (Hospitalization)
  Sender: FDA-Public Use
  Company Number: ZA-ELI_LILLY_AND_COMPANY-ZA201206000397

PATIENT
  Sex: Female

DRUGS (2)
  1. HUMULIN 70/30 [Suspect]
     Indication: HYPERGLYCAEMIA
     Dosage: UNK UNK, UNKNOWN
  2. HUMULIN 70/30 [Suspect]
     Dosage: UNK, UNKNOWN

REACTIONS (1)
  - HYPERGLYCAEMIA [None]
